FAERS Safety Report 18408024 (Version 1)
Quarter: 2020Q4

REPORT INFORMATION
  Report Type: Other
  Country: CA (occurrence: CA)
  Receive Date: 20201021
  Receipt Date: 20201021
  Transmission Date: 20210114
  Serious: Yes (Other)
  Sender: FDA-Public Use
  Company Number: CA-CELLTRION INC.-2020CA029019

PATIENT

DRUGS (17)
  1. AMLODIPINE [Concomitant]
     Active Substance: AMLODIPINE BESYLATE
  2. ARANESP [Concomitant]
     Active Substance: DARBEPOETIN ALFA
  3. TYLENOL [Concomitant]
     Active Substance: ACETAMINOPHEN
     Indication: PREMEDICATION
     Dosage: 650 MILLIGRAM
     Route: 048
  4. METHYLPREDNISOLONE SODIUM SUCCINATE. [Suspect]
     Active Substance: METHYLPREDNISOLONE SODIUM SUCCINATE
     Indication: PREMEDICATION
     Dosage: 100 MILLIGRAM
     Route: 042
  5. LEVEMIR [Concomitant]
     Active Substance: INSULIN DETEMIR
  6. RITUXIMAB (UNKNOWN) [Suspect]
     Active Substance: RITUXIMAB
     Indication: PEMPHIGUS
     Dosage: 1000 MILLIGRAM, 1 EVERY 6 MONTHS
     Route: 042
  7. BISOPROLOL [Concomitant]
     Active Substance: BISOPROLOL
  8. EZETIMIBE. [Concomitant]
     Active Substance: EZETIMIBE
  9. HYDRALAZINE [Concomitant]
     Active Substance: HYDRALAZINE HYDROCHLORIDE
  10. MAGLUCATE [Concomitant]
     Active Substance: MAGNESIUM GLUCONATE
  11. VITAMIN B12 [Concomitant]
     Active Substance: CYANOCOBALAMIN
  12. CHLORTHALIDONE. [Concomitant]
     Active Substance: CHLORTHALIDONE
  13. BENADRYL [Concomitant]
     Active Substance: DIPHENHYDRAMINE HYDROCHLORIDE
     Indication: PREMEDICATION
     Dosage: 50 MILLIGRAM
     Route: 048
  14. D-TABS [Concomitant]
     Active Substance: CHOLECALCIFEROL
  15. NOVORAPID [Concomitant]
     Active Substance: INSULIN ASPART
  16. CLONIDINE. [Concomitant]
     Active Substance: CLONIDINE
  17. TELMISARTAN. [Concomitant]
     Active Substance: TELMISARTAN

REACTIONS (7)
  - Blood glucose increased [Recovered/Resolved]
  - Diabetes mellitus [Recovered/Resolved]
  - Off label use [Recovered/Resolved]
  - Blood pressure systolic abnormal [Recovered/Resolved]
  - Blood pressure systolic increased [Recovered/Resolved]
  - Hypotension [Recovered/Resolved]
  - Intentional product use issue [Recovered/Resolved]
